FAERS Safety Report 6952765-2 (Version None)
Quarter: 2010Q3

REPORT INFORMATION
  Report Type: 
  Country: None (occurrence: None)
  Receive Date: 20100829
  Receipt Date: 20100513
  Transmission Date: 20110219
  Serious: No
  Sender: FDA-Public Use
  Company Number: US-ABBOTT-10P-163-0645496-00

PATIENT
  Sex: Female
  Weight: 107.6 kg

DRUGS (5)
  1. NIASPAN [Suspect]
     Indication: HIGH DENSITY LIPOPROTEIN DECREASED
     Route: 048
     Dates: start: 20100415, end: 20100509
  2. NIASPAN [Suspect]
     Indication: LOW DENSITY LIPOPROTEIN INCREASED
  3. MULTI-VITAMIN [Concomitant]
     Indication: MEDICAL DIET
     Route: 048
  4. COQ-10 [Concomitant]
     Indication: MEDICAL DIET
     Route: 048
  5. CINNAMON [Concomitant]
     Indication: MEDICAL DIET
     Route: 048

REACTIONS (3)
  - FEELING COLD [None]
  - FLUSHING [None]
  - PALPITATIONS [None]
